FAERS Safety Report 5213249-5 (Version None)
Quarter: 2007Q1

REPORT INFORMATION
  Report Type: 
  Country: None (occurrence: None)
  Receive Date: 20070117
  Receipt Date: 20070117
  Transmission Date: 20070707
  Serious: Yes (Other)
  Sender: FDA-Public Use
  Company Number: None

PATIENT
  Age: 75 Year
  Sex: Female
  Weight: 87.0906 kg

DRUGS (2)
  1. LUCENTIS [Suspect]
     Indication: MACULAR DEGENERATION
     Dosage: SEE IMAGE
     Route: 050
     Dates: start: 20061128
  2. LUCENTIS [Suspect]
     Indication: MACULAR DEGENERATION
     Dosage: SEE IMAGE
     Route: 050
     Dates: start: 20061204

REACTIONS (1)
  - ALOPECIA [None]
